FAERS Safety Report 12674570 (Version 1)
Quarter: 2016Q3

REPORT INFORMATION
  Report Type: Spontaneous
  Country: US (occurrence: US)
  Receive Date: 20160822
  Receipt Date: 20160822
  Transmission Date: 20161109
  Serious: No
  Sender: FDA-Public Use
  Company Number: US-FRI-1000085325

PATIENT
  Age: 74 Year
  Sex: Female

DRUGS (2)
  1. SAPHRIS [Suspect]
     Active Substance: ASENAPINE MALEATE
     Dosage: 10 MG
     Route: 060
     Dates: start: 201606
  2. SAPHRIS [Suspect]
     Active Substance: ASENAPINE MALEATE
     Indication: SLEEP DISORDER
     Dosage: 10 MG
     Route: 060
     Dates: end: 201605

REACTIONS (6)
  - Drug ineffective [Recovered/Resolved]
  - Product packaging issue [Recovered/Resolved]
  - Intentional product misuse [Recovered/Resolved]
  - Product physical issue [Recovered/Resolved]
  - Off label use [Not Recovered/Not Resolved]
  - Product taste abnormal [Recovered/Resolved]

NARRATIVE: CASE EVENT DATE: 201605
